FAERS Safety Report 8300619-1 (Version None)
Quarter: 2012Q2

REPORT INFORMATION
  Report Type: 
  Country: None (occurrence: None)
  Receive Date: 20120420
  Receipt Date: 20120410
  Transmission Date: 20120825
  Serious: Yes (Hospitalization)
  Sender: FDA-Public Use
  Company Number: PHHY2012KR014235

PATIENT
  Sex: Female
  Weight: 53 kg

DRUGS (4)
  1. EXJADE [Suspect]
     Indication: APLASTIC ANAEMIA
  2. ANTINEOPLASTIC AGENTS [Concomitant]
  3. CHEMOTHERAPEUTICS [Concomitant]
  4. EXJADE [Suspect]
     Indication: IRON OVERLOAD
     Dosage: UNK UKN, UNK
     Route: 048
     Dates: start: 20100603, end: 20111201

REACTIONS (2)
  - IMMUNODEFICIENCY [None]
  - THROMBOCYTOPENIA [None]
